FAERS Safety Report 18276770 (Version 2)
Quarter: 2020Q3

REPORT INFORMATION
  Report Type: Spontaneous
  Country: JP (occurrence: JP)
  Receive Date: 20200917
  Receipt Date: 20200923
  Transmission Date: 20201103
  Serious: Yes (Other)
  Sender: FDA-Public Use
  Company Number: JP-ASTELLAS-2020JP013753

PATIENT
  Age: 8 Decade
  Sex: Female

DRUGS (1)
  1. BETANIS [Suspect]
     Active Substance: MIRABEGRON
     Indication: HYPERTONIC BLADDER
     Route: 048
     Dates: start: 20200120, end: 20200910

REACTIONS (3)
  - Renal failure [Not Recovered/Not Resolved]
  - Urinary retention [Unknown]
  - Pyrexia [Unknown]
